FAERS Safety Report 9354842 (Version 2)
Quarter: 2014Q4

REPORT INFORMATION
  Report Type: Report from Study
  Country: CA (occurrence: CA)
  Receive Date: 20130619
  Receipt Date: 20141027
  Transmission Date: 20150529
  Serious: Yes (Hospitalization)
  Sender: FDA-Public Use
  Company Number: CA-009507513-0905USA02390

PATIENT
  Age: 86 Year
  Sex: Male
  Weight: 86.18 kg

DRUGS (22)
  1. TYLENOL [Concomitant]
     Active Substance: ACETAMINOPHEN
     Dosage: TOTAL DAILY DOSE 650-1300
     Route: 048
     Dates: start: 19900101
  2. ATENOLOL. [Concomitant]
     Active Substance: ATENOLOL
     Dosage: TOTAL DAILY DOSE 100 MG
     Route: 048
     Dates: start: 20070214
  3. VENLAFAXINE HYDROCHLORIDE. [Concomitant]
     Active Substance: VENLAFAXINE HYDROCHLORIDE
     Dosage: TOTAL DAILY DOSE 75 MG
     Route: 048
     Dates: start: 20070425
  4. ASPIRIN. [Concomitant]
     Active Substance: ASPIRIN
     Dosage: TOTAL DAILY DOSE 81 MG
     Route: 048
     Dates: start: 19900101
  5. DICLOFENAC [Concomitant]
     Active Substance: DICLOFENAC
     Dosage: TOTAL DAILY DOSE 100 MG
     Route: 048
     Dates: start: 20070425
  6. GALANTAMINE [Concomitant]
     Active Substance: GALANTAMINE
     Dosage: TOTAL DAILY DOSE 8 MG
     Route: 048
     Dates: start: 20070425
  7. AMLODIPINE [Concomitant]
     Active Substance: AMLODIPINE BESYLATE
     Dosage: TOTAL DAILY DOSE 10 MG
     Route: 048
     Dates: start: 20080408
  8. LASIX [Concomitant]
     Active Substance: FUROSEMIDE
     Dosage: TOTAL DAILY DOSE 40 MG
     Route: 048
     Dates: start: 20000101
  9. CITALOPRAM [Concomitant]
     Active Substance: CITALOPRAM HYDROBROMIDE
     Dosage: TOTAL DAILY DOSE 30 MG
     Route: 048
     Dates: start: 20070425
  10. FERRIC GLUCONATE [Concomitant]
     Dosage: TOTAL DAILY DOSE 300 MG
     Route: 048
     Dates: start: 20070425
  11. ZOPICLONE [Concomitant]
     Active Substance: ZOPICLONE
     Dosage: TOTAL DAILY DOSE 7.5 MG
     Route: 048
     Dates: start: 19900101
  12. LEVOTHYROXINE SODIUM. [Concomitant]
     Active Substance: LEVOTHYROXINE SODIUM
     Dosage: TOTAL DAILY DOSE 75 MCG
     Route: 048
     Dates: start: 20030101
  13. COLACE [Concomitant]
     Active Substance: DOCUSATE SODIUM
     Dosage: TOTAL DAILY DOSE 4 TABS
     Route: 048
     Dates: start: 20070425
  14. MISOPROSTOL. [Concomitant]
     Active Substance: MISOPROSTOL
     Dosage: TOTAL DAILY DOSE 400 MG
     Route: 048
     Dates: start: 20070425
  15. HYDROMORPHONE [Concomitant]
     Active Substance: HYDROMORPHONE
     Dosage: TOTAL DAILY DOSE 2-16 MG
     Route: 048
     Dates: start: 20080201
  16. SENOKOT [Concomitant]
     Active Substance: SENNOSIDES
     Dosage: TOTAL DAILY DOSE 4 TABS
     Route: 048
     Dates: start: 20070425
  17. REMERON [Suspect]
     Active Substance: MIRTAZAPINE
     Indication: DEPRESSION
     Dosage: 15 MG, HS
     Route: 048
     Dates: start: 20090227, end: 20090319
  18. EZETIMIBE AND SIMVASTATIN [Suspect]
     Active Substance: EZETIMIBE\SIMVASTATIN
     Indication: ACUTE CORONARY SYNDROME
     Dosage: UNK
     Route: 048
     Dates: start: 20070425
  19. NITROPATCH [Concomitant]
     Dosage: TOTAL DAILY DOSE 0.4 MG
     Route: 061
     Dates: start: 20000102
  20. RABEPRAZOLE SODIUM. [Concomitant]
     Active Substance: RABEPRAZOLE SODIUM
     Dosage: TOTAL DAILY DOSE 20 MG
     Route: 048
     Dates: start: 20030101
  21. HYDROMORPHONE [Concomitant]
     Active Substance: HYDROMORPHONE
     Dosage: 3 MG, Q12H
     Route: 048
     Dates: start: 20080223
  22. MOXIFLOXACIN HYDROCHLORIDE. [Concomitant]
     Active Substance: MOXIFLOXACIN HYDROCHLORIDE
     Dosage: TOTAL DAILY DOSE 400 MG
     Route: 048
     Dates: start: 20090222, end: 20090222

REACTIONS (4)
  - Pneumonia [Recovered/Resolved]
  - Suicidal ideation [Recovered/Resolved]
  - Hallucination [Recovered/Resolved]
  - Urinary tract infection [Recovered/Resolved]

NARRATIVE: CASE EVENT DATE: 20090223
